FAERS Safety Report 5259941-8 (Version None)
Quarter: 2007Q1

REPORT INFORMATION
  Report Type: 
  Country: None (occurrence: None)
  Receive Date: 20070309
  Receipt Date: 20070301
  Transmission Date: 20070707
  Serious: Yes (Life-Threatening, Hospitalization)
  Sender: FDA-Public Use
  Company Number: AT-GLAXOSMITHKLINE-B0456518A

PATIENT
  Age: 77 Year
  Sex: Female
  Weight: 73 kg

DRUGS (6)
  1. ARIXTRA [Suspect]
     Indication: THROMBOSIS PROPHYLAXIS
     Route: 058
     Dates: start: 20061121, end: 20061123
  2. FRAXIPARIN [Suspect]
     Indication: THROMBOSIS PROPHYLAXIS
     Dosage: .4ML SEE DOSAGE TEXT
     Route: 058
     Dates: start: 20061119, end: 20061120
  3. BLOPRESS [Concomitant]
     Indication: BLOOD PRESSURE
     Dosage: 16MG PER DAY
     Route: 048
  4. EUTHYROX [Concomitant]
     Dosage: 75MCG SEE DOSAGE TEXT
     Route: 048
  5. NEXIUM [Concomitant]
     Indication: PROPHYLAXIS
     Dosage: 40MG PER DAY
  6. HALCION [Concomitant]
     Indication: INSOMNIA

REACTIONS (3)
  - CIRCULATORY COLLAPSE [None]
  - DYSPNOEA [None]
  - PULMONARY EMBOLISM [None]
